FAERS Safety Report 8828155 (Version 1)
Quarter: 2012Q4

REPORT INFORMATION
  Report Type: 
  Country: US (occurrence: US)
  Receive Date: 20121005
  Receipt Date: 20121005
  Transmission Date: 20130627
  Serious: Yes (Other)
  Sender: FDA-Public Use
  Company Number: US-PFIZER INC-2012241886

PATIENT
  Age: 68 Year
  Sex: Male
  Weight: 90.7 kg

DRUGS (2)
  1. XALATAN [Suspect]
     Indication: INTRAOCULAR PRESSURE INCREASED
     Dosage: 1 Gtt, daily
     Route: 047
     Dates: end: 2011
  2. XALATAN [Suspect]
     Dosage: UNK
     Route: 047

REACTIONS (2)
  - Cataract [Recovered/Resolved]
  - Intraocular pressure increased [Unknown]
